FAERS Safety Report 7836158-1 (Version None)
Quarter: 2011Q4

REPORT INFORMATION
  Report Type: 
  Country: None (occurrence: None)
  Receive Date: 20111024
  Receipt Date: 20111013
  Transmission Date: 20120403
  Serious: Yes (Hospitalization, Congenital Anomaly)
  Sender: FDA-Public Use
  Company Number: JP-ASTRAZENECA-2011SE47956

PATIENT
  Age: 0 Day
  Sex: Female
  Weight: 2.8 kg

DRUGS (6)
  1. DEPAS [Suspect]
     Indication: MATERNAL EXPOSURE DURING PREGNANCY
     Route: 064
     Dates: end: 20110728
  2. DEPAKENE [Suspect]
     Route: 064
     Dates: start: 20081017, end: 20110217
  3. YOKUKAN-SAN [Suspect]
     Route: 064
     Dates: start: 20101101, end: 20110217
  4. SEROQUEL [Suspect]
     Route: 064
     Dates: start: 20080829, end: 20110217
  5. SEROQUEL [Suspect]
     Indication: MATERNAL EXPOSURE DURING PREGNANCY
     Route: 064
     Dates: start: 20080829, end: 20110217
  6. ROHYPNOL [Suspect]
     Indication: MATERNAL EXPOSURE DURING PREGNANCY
     Route: 064
     Dates: end: 20110217

REACTIONS (2)
  - HYPOTHERMIA [None]
  - DRUG WITHDRAWAL SYNDROME NEONATAL [None]
